FAERS Safety Report 7897004-3 (Version None)
Quarter: 2011Q4

REPORT INFORMATION
  Report Type: 
  Country: None (occurrence: None)
  Receive Date: 20111107
  Receipt Date: 20111101
  Transmission Date: 20120403
  Serious: Yes (Other)
  Sender: FDA-Public Use
  Company Number: US-PFIZER INC-2011268099

PATIENT
  Age: 87 Year
  Sex: Female

DRUGS (6)
  1. LIPITOR [Suspect]
     Dosage: 10 MG, 1X/DAY
     Dates: end: 20110701
  2. TIAZAC [Suspect]
     Indication: ATRIAL FIBRILLATION
     Dosage: 240 MG, 1X/DAY
     Route: 048
     Dates: start: 20110508, end: 20110701
  3. BENICAR [Concomitant]
     Dosage: 40 MG, 1X/DAY
  4. DRONEDARONE HCL [Suspect]
     Dosage: UNK
     Dates: end: 20110701
  5. LASIX [Concomitant]
     Dosage: 60 MG, 1X/DAY
  6. WARFARIN [Concomitant]
     Dosage: UNK

REACTIONS (1)
  - HEPATIC ENZYME INCREASED [None]
